FAERS Safety Report 5775133-8 (Version None)
Quarter: 2008Q2

REPORT INFORMATION
  Report Type: 
  Country: None (occurrence: None)
  Receive Date: 20080617
  Receipt Date: 20080610
  Transmission Date: 20081010
  Serious: Yes (Hospitalization)
  Sender: FDA-Public Use
  Company Number: AU-AMGEN-US273650

PATIENT
  Sex: Male

DRUGS (3)
  1. PANITUMUMAB [Suspect]
     Indication: SQUAMOUS CELL CARCINOMA
     Route: 042
     Dates: start: 20080307
  2. FLUOROURACIL [Concomitant]
     Route: 042
  3. CISPLATIN [Concomitant]
     Route: 042

REACTIONS (4)
  - GOUT [None]
  - HAEMATOCRIT DECREASED [None]
  - HYPOTENSION [None]
  - SYNCOPE [None]
